FAERS Safety Report 14868195 (Version 1)
Quarter: 2018Q2

REPORT INFORMATION
  Report Type: Spontaneous
  Country: US (occurrence: US)
  Receive Date: 20180509
  Receipt Date: 20180509
  Transmission Date: 20180711
  Serious: Yes (Other)
  Sender: FDA-Public Use
  Company Number: US-TEVA-2018-US-889342

PATIENT
  Sex: Female

DRUGS (8)
  1. AUSTEDO [Suspect]
     Active Substance: DEUTETRABENAZINE
     Indication: TARDIVE DYSKINESIA
     Dosage: AUSTEDO 12MG TABLET, AUSTEDO 9MG TABLET AND AUSTEDO 6MG TABLET
     Route: 048
  2. TRAZODONE [Concomitant]
     Active Substance: TRAZODONE HYDROCHLORIDE
  3. CHANTIX [Concomitant]
     Active Substance: VARENICLINE TARTRATE
  4. MULTIPLE VITAMIN [Concomitant]
     Active Substance: VITAMINS
  5. COLLAGEN [Concomitant]
     Active Substance: COLLAGEN
  6. TOPAMAX [Concomitant]
     Active Substance: TOPIRAMATE
  7. PROZAC [Concomitant]
     Active Substance: FLUOXETINE HYDROCHLORIDE
  8. VIVITROL [Concomitant]
     Active Substance: NALTREXONE

REACTIONS (2)
  - Renal impairment [Unknown]
  - Creatinine renal clearance decreased [Unknown]
